FAERS Safety Report 6775224-9 (Version None)
Quarter: 2010Q2

REPORT INFORMATION
  Report Type: 
  Country: None (occurrence: None)
  Receive Date: 20100615
  Receipt Date: 20100615
  Transmission Date: 20101027
  Serious: Yes (Disabling)
  Sender: FDA-Public Use
  Company Number: None

PATIENT
  Age: 58 Year
  Sex: Male

DRUGS (1)
  1. NOVOLOG [Suspect]
     Indication: HYPERKALAEMIA
     Dosage: 10 UNITS STAT IV BOLUS
     Route: 040

REACTIONS (4)
  - BLOOD GLUCOSE DECREASED [None]
  - DRUG LABEL CONFUSION [None]
  - INCORRECT DOSE ADMINISTERED [None]
  - INJECTION SITE EXTRAVASATION [None]
